FAERS Safety Report 9783627 (Version 1)
Quarter: 2013Q4

REPORT INFORMATION
  Report Type: Spontaneous
  Country: US (occurrence: US)
  Receive Date: 20131226
  Receipt Date: 20131226
  Transmission Date: 20140711
  Serious: No
  Sender: FDA-Public Use
  Company Number: US-PFIZER INC-2013369323

PATIENT
  Age: 70 Year
  Sex: Male
  Weight: 90.7 kg

DRUGS (5)
  1. LYRICA [Suspect]
     Indication: SCROTAL PAIN
     Dosage: 50 MG, 2X/DAY
     Dates: start: 201312
  2. LYRICA [Suspect]
     Indication: PAIN
     Dosage: 75 MG, 2X/DAY
     Dates: start: 201312
  3. LYRICA [Suspect]
     Indication: PROCEDURAL PAIN
  4. LYRICA [Suspect]
     Indication: NEUROPATHY PERIPHERAL
  5. LYRICA [Suspect]
     Indication: SCAR

REACTIONS (2)
  - Off label use [Unknown]
  - Drug ineffective [Unknown]
